FAERS Safety Report 8132791-0 (Version None)
Quarter: 2012Q1

REPORT INFORMATION
  Report Type: 
  Country: None (occurrence: None)
  Receive Date: 20120213
  Receipt Date: 20120203
  Transmission Date: 20120608
  Serious: Yes (Hospitalization, Other)
  Sender: FDA-Public Use
  Company Number: US-MERCK-1105USA01334

PATIENT
  Age: 65 Year
  Sex: Female
  Weight: 68 kg

DRUGS (9)
  1. FOSAMAX [Suspect]
     Route: 048
     Dates: start: 20010525, end: 20020101
  2. FOSAMAX [Suspect]
     Indication: OSTEOPOROSIS
     Route: 048
     Dates: start: 19960101, end: 20010201
  3. ACTONEL [Suspect]
     Indication: OSTEOPOROSIS
     Route: 048
     Dates: start: 20020101
  4. FOSAMAX [Suspect]
     Indication: OSTEOPENIA
     Route: 048
     Dates: start: 19960101, end: 20010201
  5. BONIVA [Suspect]
     Indication: OSTEOPENIA
     Route: 048
     Dates: start: 20061001, end: 20090401
  6. ACTONEL [Suspect]
     Indication: OSTEOPENIA
     Route: 048
     Dates: start: 20020101
  7. BONIVA [Suspect]
     Indication: OSTEOPOROSIS
     Route: 048
     Dates: start: 20061001, end: 20090401
  8. CALCIUM (UNSPECIFIED) [Concomitant]
     Route: 065
     Dates: start: 19960101
  9. FOSAMAX [Suspect]
     Route: 048
     Dates: start: 20010525, end: 20020101

REACTIONS (31)
  - OSTEOARTHRITIS [None]
  - ABDOMINAL DISCOMFORT [None]
  - DEPRESSION [None]
  - HYPERTENSION [None]
  - ACUTE MYOCARDIAL INFARCTION [None]
  - CROHN'S DISEASE [None]
  - PULMONARY HYPERTENSION [None]
  - GLUCOSE TOLERANCE IMPAIRED [None]
  - CANDIDIASIS [None]
  - ANAEMIA POSTOPERATIVE [None]
  - CLOSTRIDIUM DIFFICILE COLITIS [None]
  - ESCHERICHIA URINARY TRACT INFECTION [None]
  - SPINAL OSTEOARTHRITIS [None]
  - HYPOKALAEMIA [None]
  - ANGER [None]
  - VERTIGO [None]
  - TOOTH DISORDER [None]
  - NEPHROLITHIASIS [None]
  - BLOOD CHOLESTEROL INCREASED [None]
  - FEMUR FRACTURE [None]
  - DIZZINESS [None]
  - IMPAIRED HEALING [None]
  - HAEMOGLOBIN DECREASED [None]
  - STAPHYLOCOCCAL INFECTION [None]
  - GASTROOESOPHAGEAL REFLUX DISEASE [None]
  - BURSITIS [None]
  - RENAL CYST [None]
  - LUNG NEOPLASM [None]
  - HYPERTROPHIC CARDIOMYOPATHY [None]
  - HYPERPARATHYROIDISM PRIMARY [None]
  - HEART DISEASE CONGENITAL [None]
